FAERS Safety Report 21396210 (Version 1)
Quarter: 2022Q3

REPORT INFORMATION
  Report Type: Spontaneous
  Country: US (occurrence: US)
  Receive Date: 20220930
  Receipt Date: 20220930
  Transmission Date: 20221026
  Serious: No
  Sender: FDA-Public Use
  Company Number: US-009507513-2209USA010653

PATIENT
  Age: 11 Year
  Sex: Female

DRUGS (3)
  1. ZOLINZA [Suspect]
     Active Substance: VORINOSTAT
     Indication: Myelodysplastic syndrome
     Dosage: UNK UNK, CYCLICAL
     Route: 048
  2. ZOLINZA [Suspect]
     Active Substance: VORINOSTAT
     Dosage: 180 MG/SQ. METER/DOSE DAILY BY MOUTH FOR 4 DOSES EACH WEEK (DAYS1-4)
     Route: 048
  3. DECITABINE [Concomitant]
     Active Substance: DECITABINE
     Indication: Myelodysplastic syndrome
     Dosage: UNK, CYCLICAL

REACTIONS (2)
  - Product use in unapproved indication [Unknown]
  - Product use issue [Unknown]
